FAERS Safety Report 24161555 (Version 1)
Quarter: 2024Q3

REPORT INFORMATION
  Report Type: Spontaneous
  Country: US (occurrence: US)
  Receive Date: 20240801
  Receipt Date: 20240801
  Transmission Date: 20241017
  Serious: Yes (Other)
  Sender: SANOFI AVENTIS
  Company Number: US-SANOFI-02136463

PATIENT
  Age: 70 Year
  Sex: Male

DRUGS (1)
  1. DUPIXENT [Suspect]
     Active Substance: DUPILUMAB
     Indication: Product used for unknown indication
     Dosage: UNK

REACTIONS (6)
  - Immunosuppression [Unknown]
  - Fatigue [Unknown]
  - Lethargy [Unknown]
  - Sinusitis [Unknown]
  - Condition aggravated [Unknown]
  - Vision blurred [Unknown]
